FAERS Safety Report 17124390 (Version 1)
Quarter: 2019Q4

REPORT INFORMATION
  Report Type: Spontaneous
  Country: US (occurrence: US)
  Receive Date: 20191206
  Receipt Date: 20191206
  Transmission Date: 20200122
  Serious: No
  Sender: FDA-Public Use
  Company Number: US-ADMA BIOLOGICS INC.-US-2019ADM000017

PATIENT

DRUGS (1)
  1. NABI-HB [Suspect]
     Active Substance: HUMAN HEPATITIS B VIRUS IMMUNE GLOBULIN
     Indication: IMMUNOGLOBULIN THERAPY
     Dosage: UNK
     Route: 030

REACTIONS (2)
  - Expired product administered [Unknown]
  - Accidental exposure to product [Unknown]
